FAERS Safety Report 12765197 (Version 1)
Quarter: 2016Q3

REPORT INFORMATION
  Report Type: Spontaneous
  Country: US (occurrence: US)
  Receive Date: 20160921
  Receipt Date: 20160921
  Transmission Date: 20161109
  Serious: No
  Sender: FDA-Public Use
  Company Number: US-TEVA-693323USA

PATIENT
  Sex: Male

DRUGS (1)
  1. COPAXONE [Suspect]
     Active Substance: GLATIRAMER ACETATE
     Indication: MULTIPLE SCLEROSIS

REACTIONS (6)
  - Hyperhidrosis [Unknown]
  - Palpitations [Unknown]
  - Injection site swelling [Recovered/Resolved]
  - Muscle twitching [Unknown]
  - Dizziness [Unknown]
  - Injection site erythema [Recovered/Resolved]
